FAERS Safety Report 13047634 (Version 2)
Quarter: 2017Q1

REPORT INFORMATION
  Report Type: Spontaneous
  Country: US (occurrence: US)
  Receive Date: 20161220
  Receipt Date: 20170109
  Transmission Date: 20170428
  Serious: No
  Sender: FDA-Public Use
  Company Number: US-ALLERGAN-1678920US

PATIENT
  Age: 72 Year
  Sex: Male
  Weight: 62.13 kg

DRUGS (2)
  1. VIBERZI [Suspect]
     Active Substance: ELUXADOLINE
     Indication: IRRITABLE BOWEL SYNDROME
     Dosage: 75 MG, BID
     Route: 048
     Dates: start: 2016
  2. VIBERZI [Suspect]
     Active Substance: ELUXADOLINE
     Dosage: 100 MG, BID
     Route: 048
     Dates: end: 201612

REACTIONS (4)
  - Thyroid disorder [Recovered/Resolved]
  - Weight decreased [Recovering/Resolving]
  - Off label use [Unknown]
  - Drug ineffective [Unknown]
